FAERS Safety Report 9178968 (Version 1)
Quarter: 2013Q1

REPORT INFORMATION
  Report Type: Report from Study
  Country: US (occurrence: US)
  Receive Date: 20130321
  Receipt Date: 20130321
  Transmission Date: 20140127
  Serious: Yes (Other)
  Sender: FDA-Public Use
  Company Number: US-ROCHE-1088105

PATIENT
  Sex: Male

DRUGS (2)
  1. RANIBIZUMAB [Suspect]
     Indication: ANGIOPATHY
     Route: 050
     Dates: start: 20120619
  2. RANIBIZUMAB [Suspect]
     Indication: HYPERTENSION

REACTIONS (3)
  - Blindness [Unknown]
  - Eyelid oedema [Unknown]
  - Hypertension [Unknown]
